FAERS Safety Report 7022878-8 (Version None)
Quarter: 2010Q3

REPORT INFORMATION
  Report Type: 
  Country: None (occurrence: None)
  Receive Date: 20100930
  Receipt Date: 20100927
  Transmission Date: 20110219
  Serious: Yes (Hospitalization, Other)
  Sender: FDA-Public Use
  Company Number: JP-BAYER-201010707BYL

PATIENT
  Age: 63 Year
  Sex: Male
  Weight: 57 kg

DRUGS (15)
  1. NEXAVAR [Suspect]
     Indication: HEPATIC NEOPLASM MALIGNANT
     Dosage: TOTAL DAILY DOSE: 800 MG  UNIT DOSE: 200 MG
     Route: 048
     Dates: start: 20090626, end: 20090701
  2. NEXAVAR [Suspect]
     Dosage: UNIT DOSE: 200 MG
     Route: 048
     Dates: start: 20090702, end: 20090821
  3. NEXAVAR [Suspect]
     Dosage: UNIT DOSE: 200 MG
     Route: 048
     Dates: start: 20090828, end: 20100218
  4. NEXAVAR [Suspect]
     Dosage: UNIT DOSE: 200 MG
     Route: 048
     Dates: start: 20100304, end: 20100430
  5. SUTENT [Suspect]
     Indication: HEPATIC NEOPLASM MALIGNANT
     Route: 048
     Dates: start: 20090515, end: 20090525
  6. NOVAMIN [Suspect]
     Indication: NAUSEA
     Route: 048
     Dates: start: 20091015, end: 20091126
  7. NOVAMIN [Suspect]
     Dosage: 10-15MG
     Route: 048
     Dates: start: 20090913, end: 20090915
  8. OXYCONTIN [Concomitant]
     Dosage: SINCE BEFORE ADMINISTRATION
     Route: 048
  9. GASMOTIN [Concomitant]
     Dosage: UNIT DOSE: 5 MG
     Route: 048
  10. MAGNESIUM OXIDE [Concomitant]
     Indication: CONSTIPATION PROPHYLAXIS
     Dosage: UNIT DOSE: 1 G
     Route: 048
     Dates: end: 20090819
  11. MAGNESIUM OXIDE [Concomitant]
     Dosage: UNIT DOSE: 1 G
     Route: 048
     Dates: start: 20100301
  12. MAGNESIUM OXIDE [Concomitant]
     Dosage: UNIT DOSE: 1 G
     Route: 048
     Dates: start: 20090820, end: 20100301
  13. KERATINAMIN [Concomitant]
     Indication: PROPHYLAXIS
     Route: 061
     Dates: start: 20090625, end: 20100430
  14. LAXOBERON [Concomitant]
     Indication: CONSTIPATION PROPHYLAXIS
     Dosage: AS NEEDED
     Route: 048
     Dates: start: 20090723
  15. OXINORM [Concomitant]
     Indication: PAIN
     Dosage: TOTAL DAILY DOSE: 5 MG  UNIT DOSE: 5 MG
     Route: 048
     Dates: start: 20091029

REACTIONS (11)
  - AKATHISIA [None]
  - ALOPECIA [None]
  - DECREASED APPETITE [None]
  - HEPATIC FUNCTION ABNORMAL [None]
  - HYPERTENSION [None]
  - NAUSEA [None]
  - PALMAR-PLANTAR ERYTHRODYSAESTHESIA SYNDROME [None]
  - PNEUMONIA [None]
  - PULMONARY TUBERCULOSIS [None]
  - PYREXIA [None]
  - RASH [None]
